FAERS Safety Report 8016134-9 (Version None)
Quarter: 2011Q4

REPORT INFORMATION
  Report Type: 
  Country: None (occurrence: None)
  Receive Date: 20111230
  Receipt Date: 20111228
  Transmission Date: 20120403
  Serious: Yes (Other)
  Sender: FDA-Public Use
  Company Number: NO-SANOFI-AVENTIS-2011SA084232

PATIENT
  Age: 60 Year
  Sex: Male

DRUGS (3)
  1. OXALIPLATIN [Suspect]
     Indication: COLORECTAL CANCER
     Dosage: 140 MG 1 EVERY 14 DAYS
     Route: 042
     Dates: start: 20110426, end: 20111006
  2. FLUOROURACIL [Concomitant]
     Indication: COLORECTAL CANCER
     Dosage: 1100 MG 2 EVERY 14 DAYS
     Route: 065
     Dates: start: 20110426, end: 20110920
  3. LEUCOVORIN CALCIUM [Concomitant]
     Indication: COLON CANCER
     Dosage: 100 MG/2 EVERY 14 DAYS
     Route: 065
     Dates: start: 20110426, end: 20110920

REACTIONS (2)
  - DISSEMINATED INTRAVASCULAR COAGULATION [None]
  - RENAL FAILURE [None]
